FAERS Safety Report 5595617-5 (Version None)
Quarter: 2008Q1

REPORT INFORMATION
  Report Type: 
  Country: None (occurrence: None)
  Receive Date: 20080116
  Receipt Date: 20080116
  Transmission Date: 20080703
  Serious: Yes (Hospitalization, Other)
  Sender: FDA-Public Use
  Company Number: None

PATIENT
  Age: 58 Year
  Sex: Female
  Weight: 72 kg

DRUGS (1)
  1. CHANTIX [Suspect]
     Indication: SMOKING CESSATION THERAPY
     Dosage: 0.5MG  ONCE DAILY  PO
     Route: 048
     Dates: start: 20080102, end: 20080109

REACTIONS (4)
  - DEPRESSION [None]
  - FEAR [None]
  - HALLUCINATION, AUDITORY [None]
  - SUICIDAL IDEATION [None]
